FAERS Safety Report 20653950 (Version 14)
Quarter: 2023Q2

REPORT INFORMATION
  Report Type: Spontaneous
  Country: US (occurrence: US)
  Receive Date: 20220330
  Receipt Date: 20230519
  Transmission Date: 20230722
  Serious: Yes (Hospitalization, Other)
  Sender: FDA-Public Use
  Company Number: US-PFIZER INC-202200427163

PATIENT
  Age: 67 Year
  Sex: Female
  Weight: 83.9 kg

DRUGS (7)
  1. BOSULIF [Suspect]
     Active Substance: BOSUTINIB MONOHYDRATE
     Indication: Chronic myeloid leukaemia
     Dosage: 400 MG
     Dates: start: 20220502
  2. BOSULIF [Suspect]
     Active Substance: BOSUTINIB MONOHYDRATE
     Dosage: 400 MG
     Dates: start: 20220826, end: 202211
  3. BOSULIF [Suspect]
     Active Substance: BOSUTINIB MONOHYDRATE
     Dosage: EVERY NIGHT AT BEDTIME (QHS)
     Dates: start: 20221121
  4. BOSULIF [Suspect]
     Active Substance: BOSUTINIB MONOHYDRATE
     Dosage: 400 MG
     Dates: start: 20230109
  5. BOSULIF [Suspect]
     Active Substance: BOSUTINIB MONOHYDRATE
     Dosage: 400 MG
     Dates: start: 20230410
  6. ASPIRIN [Concomitant]
     Active Substance: ASPIRIN
     Dosage: 81 MG
  7. SIMVASTATIN [Concomitant]
     Active Substance: SIMVASTATIN
     Dosage: UNK

REACTIONS (13)
  - Vocal cord disorder [Unknown]
  - COVID-19 [Recovered/Resolved]
  - Hyperpyrexia [Unknown]
  - Discouragement [Unknown]
  - Stress [Unknown]
  - Feeling abnormal [Unknown]
  - Malaise [Unknown]
  - Dysphonia [Unknown]
  - Neoplasm progression [Unknown]
  - Insomnia [Unknown]
  - Fatigue [Unknown]
  - Feeling cold [Unknown]
  - Blood cholesterol abnormal [Unknown]

NARRATIVE: CASE EVENT DATE: 20220101
